FAERS Safety Report 9988779 (Version 1)
Quarter: 2013Q4

REPORT INFORMATION
  Report Type: Spontaneous
  Country: PA (occurrence: None)
  Receive Date: 20131010
  Receipt Date: 20131010
  Transmission Date: 20140711
  Serious: Yes (Other)
  Sender: FDA-Public Use
  Company Number: 7233486

PATIENT
  Age: 58 Year
  Sex: Female

DRUGS (3)
  1. EUTIROX (LEVOTHYROXINE SODIUM) [Suspect]
     Route: 048
     Dates: end: 2006
  2. RIVOTRIL (CLONAZEPAM) [Suspect]
     Indication: ANXIETY
     Route: 048
     Dates: end: 1998
  3. KARVEA HCT [Suspect]
     Indication: HYPERTENSION
     Route: 048
     Dates: end: 2006

REACTIONS (1)
  - Toxic skin eruption [None]
